FAERS Safety Report 8331709-5 (Version None)
Quarter: 2012Q2

REPORT INFORMATION
  Report Type: 
  Country: None (occurrence: None)
  Receive Date: 20120502
  Receipt Date: 20120206
  Transmission Date: 20120825
  Serious: No
  Sender: FDA-Public Use
  Company Number: US-ASTRAZENECA-2012SE07947

PATIENT
  Age: 24 Year
  Sex: Male
  Weight: 59 kg

DRUGS (1)
  1. ENTOCORT EC [Suspect]
     Indication: CROHN'S DISEASE
     Route: 048

REACTIONS (2)
  - WEIGHT DECREASED [None]
  - DRUG DOSE OMISSION [None]
